FAERS Safety Report 15944336 (Version 1)
Quarter: 2019Q1

REPORT INFORMATION
  Report Type: Spontaneous
  Country: US (occurrence: US)
  Receive Date: 20190211
  Receipt Date: 20190211
  Transmission Date: 20190417
  Serious: Yes (Other)
  Sender: FDA-Public Use
  Company Number: US-ROCHE-2261343

PATIENT

DRUGS (2)
  1. XOLAIR [Suspect]
     Active Substance: OMALIZUMAB
     Indication: ASTHMA
     Route: 065
  2. FASENRA [Concomitant]
     Active Substance: BENRALIZUMAB

REACTIONS (1)
  - Cardiovascular disorder [Unknown]
